FAERS Safety Report 24557535 (Version 1)
Quarter: 2024Q4

REPORT INFORMATION
  Report Type: Spontaneous
  Country: US (occurrence: US)
  Receive Date: 20241028
  Receipt Date: 20241028
  Transmission Date: 20250114
  Serious: Yes (Death, Other)
  Sender: AMGEN
  Company Number: US-AMGEN-USASP2024209968

PATIENT

DRUGS (7)
  1. PEGFILGRASTIM [Suspect]
     Active Substance: PEGFILGRASTIM
     Indication: Bladder transitional cell carcinoma
     Dosage: UNK
     Route: 065
  2. METHOTREXATE [Suspect]
     Active Substance: METHOTREXATE
     Indication: Bladder transitional cell carcinoma
     Dosage: 30 MILLIGRAM/SQ. METER
     Route: 065
  3. VINBLASTINE [Suspect]
     Active Substance: VINBLASTINE
     Indication: Bladder transitional cell carcinoma
     Dosage: 3 MILLIGRAM/SQ. METER
     Route: 065
  4. DOXORUBICIN [Suspect]
     Active Substance: DOXORUBICIN
     Indication: Bladder transitional cell carcinoma
     Dosage: 30 MILLIGRAM/SQ. METER
     Route: 065
  5. CISPLATIN [Suspect]
     Active Substance: CISPLATIN
     Indication: Bladder transitional cell carcinoma
     Dosage: 70 MILLIGRAM/SQ. METER, Q2WK
     Route: 065
  6. CISPLATIN [Suspect]
     Active Substance: CISPLATIN
     Dosage: 70 MILLIGRAM/SQ. METER, ON DAYS 1 AND 8, EVERY 21 DAYS
     Route: 065
  7. GEMCITABINE [Suspect]
     Active Substance: GEMCITABINE
     Indication: Bladder transitional cell carcinoma
     Dosage: 1000 MILLIGRAM/SQ. METER
     Route: 065

REACTIONS (8)
  - Death [Fatal]
  - Renal impairment [Unknown]
  - Thrombocytopenia [Unknown]
  - Asthenia [Unknown]
  - Diarrhoea [Unknown]
  - Hypotension [Unknown]
  - Anaemia [Unknown]
  - Therapy cessation [Unknown]
